FAERS Safety Report 5684359-3 (Version None)
Quarter: 2008Q1

REPORT INFORMATION
  Report Type: 
  Country: None (occurrence: None)
  Receive Date: 20080328
  Receipt Date: 20080319
  Transmission Date: 20080703
  Serious: Yes (Hospitalization)
  Sender: FDA-Public Use
  Company Number: B0513408A

PATIENT
  Age: 29 Year
  Sex: Female

DRUGS (7)
  1. AUGMENTIN '125' [Suspect]
     Indication: PHARYNGITIS
     Dosage: 1G THREE TIMES PER DAY
     Route: 048
     Dates: start: 20080203, end: 20080209
  2. ACETAMINOPHEN [Suspect]
     Indication: PHARYNGITIS
     Dosage: 1G THREE TIMES PER DAY
     Route: 048
     Dates: start: 20080203, end: 20080209
  3. APRANAX [Suspect]
     Indication: PHARYNGITIS
     Dosage: 550MG THREE TIMES PER DAY
     Route: 048
     Dates: start: 20080206, end: 20080212
  4. NIZORAL [Suspect]
     Indication: VULVOVAGINAL MYCOTIC INFECTION
     Dosage: 200MG PER DAY
     Route: 048
     Dates: start: 20080211, end: 20080216
  5. SOLUPRED [Suspect]
     Indication: PHARYNGITIS
     Dosage: 20MG TWICE PER DAY
     Route: 048
     Dates: start: 20080203, end: 20080205
  6. HEXASPRAY [Suspect]
     Indication: PHARYNGITIS
     Route: 048
     Dates: start: 20080203, end: 20080205
  7. GYNO PEVARYL [Concomitant]
     Indication: VULVOVAGINAL MYCOTIC INFECTION
     Dosage: 150MG SINGLE DOSE
     Route: 067
     Dates: start: 20080211, end: 20080211

REACTIONS (2)
  - ERYTHEMA NODOSUM [None]
  - SKIN LESION [None]
